FAERS Safety Report 22399566 (Version 1)
Quarter: 2023Q2

REPORT INFORMATION
  Report Type: Spontaneous
  Country: CN (occurrence: CN)
  Receive Date: 20230602
  Receipt Date: 20230602
  Transmission Date: 20230721
  Serious: Yes (Life-Threatening, Other)
  Sender: FDA-Public Use
  Company Number: CN-BAYER-2023A072525

PATIENT
  Age: 51 Year
  Sex: Male
  Weight: 42 kg

DRUGS (4)
  1. AVELOX [Suspect]
     Active Substance: MOXIFLOXACIN HYDROCHLORIDE
     Indication: Pulmonary tuberculosis
     Dosage: 0.4 G, QD
     Route: 048
     Dates: start: 20230329, end: 20230403
  2. RIFAMPIN [Suspect]
     Active Substance: RIFAMPIN
     Indication: Pulmonary tuberculosis
     Dosage: 0.45 G, QD
     Route: 048
     Dates: start: 20230329, end: 20230403
  3. ISONIAZID [Suspect]
     Active Substance: ISONIAZID
     Indication: Pulmonary tuberculosis
     Dosage: 0.3 G, QD
     Route: 048
     Dates: start: 20230329, end: 20230403
  4. PHOSPHOLIPID [Concomitant]
     Active Substance: PHOSPHOLIPID
     Indication: Prophylaxis
     Dosage: UNK
     Dates: start: 20230329

REACTIONS (3)
  - Drug-induced liver injury [Unknown]
  - Decreased appetite [None]
  - Off label use [None]

NARRATIVE: CASE EVENT DATE: 20230329
